FAERS Safety Report 9479301 (Version 1)
Quarter: 2013Q3

REPORT INFORMATION
  Report Type: Spontaneous
  Country: FR (occurrence: FR)
  Receive Date: 20130827
  Receipt Date: 20130827
  Transmission Date: 20140515
  Serious: Yes (Other)
  Sender: FDA-Public Use
  Company Number: FR-WATSON-2013-14951

PATIENT
  Age: 43 Year
  Sex: Male

DRUGS (6)
  1. BACLOFEN (UNKNOWN) [Suspect]
     Indication: SUICIDE ATTEMPT
     Dosage: 300 MG, UNK
     Route: 048
  2. STILNOX [Suspect]
     Indication: SUICIDE ATTEMPT
     Dosage: 10 MG, UNK
     Route: 065
  3. TEGRETOL [Suspect]
     Indication: SUICIDE ATTEMPT
     Dosage: 200,UNK,UNK
     Route: 065
  4. VALIUM /00017001/ [Suspect]
     Indication: SUICIDE ATTEMPT
     Dosage: 10 MG, UNK
     Route: 065
  5. OXCARBAZEPINE [Suspect]
     Indication: SUICIDE ATTEMPT
     Dosage: UNK
     Route: 065
  6. LASILIX /00032601/ [Suspect]
     Indication: SUICIDE ATTEMPT
     Dosage: UNK
     Route: 065

REACTIONS (3)
  - Parkinsonism [Unknown]
  - Hallucination [Unknown]
  - Depressed level of consciousness [Unknown]
